FAERS Safety Report 9016067 (Version 2)
Quarter: 2013Q1

REPORT INFORMATION
  Report Type: Report from Study
  Country: US (occurrence: US)
  Receive Date: 20130116
  Receipt Date: 20130131
  Transmission Date: 20140127
  Serious: Yes (Death, Hospitalization)
  Sender: FDA-Public Use
  Company Number: US-ACTELION-A-NJ2011-57176

PATIENT
  Age: 72 Year
  Sex: Male

DRUGS (3)
  1. TRACLEER [Suspect]
     Indication: PULMONARY ARTERIAL HYPERTENSION
     Dosage: UNK
     Route: 048
  2. PRADAXA [Concomitant]
     Route: 048
  3. ADCIRCA [Concomitant]

REACTIONS (5)
  - Death [Fatal]
  - Bronchitis [Recovering/Resolving]
  - Fluid retention [Recovering/Resolving]
  - Pulmonary arterial hypertension [Recovering/Resolving]
  - Cardiac failure congestive [Recovering/Resolving]
